FAERS Safety Report 16145705 (Version 2)
Quarter: 2019Q2

REPORT INFORMATION
  Report Type: Spontaneous
  Country: US (occurrence: US)
  Receive Date: 20190402
  Receipt Date: 20190412
  Transmission Date: 20190711
  Serious: Yes (Other)
  Sender: FDA-Public Use
  Company Number: US-BEH-2019100794

PATIENT
  Age: 67 Year
  Sex: Female

DRUGS (3)
  1. HAEGARDA [Suspect]
     Active Substance: HUMAN C1-ESTERASE INHIBITOR
     Indication: PRODUCT USED FOR UNKNOWN INDICATION
     Dosage: 4900 IU, UNK
     Route: 058
     Dates: start: 20190214, end: 2019
  2. HAEGARDA [Suspect]
     Active Substance: HUMAN C1-ESTERASE INHIBITOR
     Indication: PRODUCT USED FOR UNKNOWN INDICATION
     Dosage: 1900 IU, BIW
     Route: 058
     Dates: start: 20190214, end: 2019
  3. HAEGARDA [Suspect]
     Active Substance: HUMAN C1-ESTERASE INHIBITOR
     Dosage: 3000 IU, BIW
     Route: 058
     Dates: start: 201902, end: 2019

REACTIONS (6)
  - Pharyngeal swelling [Unknown]
  - Hypersensitivity [Unknown]
  - Urticaria [Unknown]
  - Swollen tongue [Unknown]
  - Swelling face [Unknown]
  - Lip swelling [Unknown]

NARRATIVE: CASE EVENT DATE: 201902
